FAERS Safety Report 8262940-5 (Version None)
Quarter: 2012Q2

REPORT INFORMATION
  Report Type: 
  Country: None (occurrence: None)
  Receive Date: 20120405
  Receipt Date: 20120329
  Transmission Date: 20120825
  Serious: Yes (Hospitalization)
  Sender: FDA-Public Use
  Company Number: US-GLAXOSMITHKLINE-A0969970A

PATIENT
  Age: 50 Year
  Sex: Male

DRUGS (2)
  1. NICOTINE [Suspect]
     Indication: SMOKING CESSATION THERAPY
     Dosage: 21MG UNKNOWN
     Route: 062
     Dates: start: 20120101
  2. UNSPECIFIED MEDICATION [Concomitant]

REACTIONS (17)
  - PAIN [None]
  - NASOPHARYNGITIS [None]
  - IRRITABILITY [None]
  - HYPERSENSITIVITY [None]
  - DIZZINESS [None]
  - APPLICATION SITE SWELLING [None]
  - APPLICATION SITE REACTION [None]
  - PRURITUS GENERALISED [None]
  - APPLICATION SITE PAIN [None]
  - SWELLING [None]
  - FALL [None]
  - FURUNCLE [None]
  - APPLICATION SITE PRURITUS [None]
  - APPLICATION SITE ERYTHEMA [None]
  - ANXIETY [None]
  - RASH PRURITIC [None]
  - APPLICATION SITE URTICARIA [None]
